FAERS Safety Report 20825901 (Version 1)
Quarter: 2022Q2

REPORT INFORMATION
  Report Type: Report from Study
  Country: CA (occurrence: CA)
  Receive Date: 20220513
  Receipt Date: 20220513
  Transmission Date: 20220721
  Serious: Yes (Other)
  Sender: FDA-Public Use
  Company Number: CA-BRISTOL-MYERS SQUIBB COMPANY-2022-029975

PATIENT
  Age: 74 Year
  Sex: Male

DRUGS (2)
  1. ORENCIA [Suspect]
     Active Substance: ABATACEPT
     Indication: Rheumatoid arthritis
     Dosage: 4 WEEKS
     Route: 042
     Dates: start: 20201214
  2. ORENCIA [Suspect]
     Active Substance: ABATACEPT

REACTIONS (5)
  - C-reactive protein increased [Unknown]
  - Nasopharyngitis [Unknown]
  - Liver disorder [Unknown]
  - Oedema [Unknown]
  - Hepatic cirrhosis [Unknown]
